FAERS Safety Report 6599915-8 (Version None)
Quarter: 2010Q1

REPORT INFORMATION
  Report Type: 
  Country: None (occurrence: None)
  Receive Date: 20100217
  Receipt Date: 20100127
  Transmission Date: 20100710
  Serious: Yes (Hospitalization)
  Sender: FDA-Public Use
  Company Number: 2010AP000101

PATIENT
  Age: 53 Year
  Sex: Female

DRUGS (4)
  1. TOPIRAMATE [Suspect]
     Indication: STATUS EPILEPTICUS
  2. VALPROIC ACID SYRUP [Suspect]
     Indication: STATUS EPILEPTICUS
  3. PHENYTOIN [Concomitant]
  4. LEVETIRACETAM [Concomitant]

REACTIONS (3)
  - DRUG INTERACTION [None]
  - HYPERAMMONAEMIC ENCEPHALOPATHY [None]
  - METABOLIC ENCEPHALOPATHY [None]
